FAERS Safety Report 10602722 (Version 1)
Quarter: 2014Q4

REPORT INFORMATION
  Report Type: Spontaneous
  Country: GB (occurrence: GB)
  Receive Date: 20141124
  Receipt Date: 20141124
  Transmission Date: 20150529
  Serious: Yes (Other)
  Sender: FDA-Public Use
  Company Number: PHHY2014GB150177

PATIENT
  Age: 58 Year
  Sex: Male
  Weight: 100 kg

DRUGS (2)
  1. PIOGLITAZONE [Suspect]
     Active Substance: PIOGLITAZONE
     Indication: DIABETES MELLITUS INADEQUATE CONTROL
     Dosage: 30 MG, UNK
     Route: 048
     Dates: start: 201001, end: 201411
  2. LIXISENATIDE [Interacting]
     Active Substance: LIXISENATIDE
     Indication: DIABETES MELLITUS MANAGEMENT
     Route: 058
     Dates: start: 201408

REACTIONS (5)
  - Cardiac failure [Recovered/Resolved]
  - Malaise [Recovered/Resolved]
  - Drug interaction [Unknown]
  - Pulmonary oedema [Recovered/Resolved]
  - Oedema peripheral [Recovered/Resolved]

NARRATIVE: CASE EVENT DATE: 20141017
